FAERS Safety Report 7005241-5 (Version None)
Quarter: 2010Q3

REPORT INFORMATION
  Report Type: 
  Country: None (occurrence: None)
  Receive Date: 20100917
  Receipt Date: 20100903
  Transmission Date: 20110219
  Serious: Yes (Other)
  Sender: FDA-Public Use
  Company Number: PHHY2010LB58994

PATIENT
  Age: 66 Year
  Sex: Female

DRUGS (1)
  1. VISUDYNE [Suspect]
     Indication: CHOROIDAL NEOVASCULARISATION

REACTIONS (3)
  - MACULAR HOLE [None]
  - RETINAL OEDEMA [None]
  - VISUAL ACUITY REDUCED [None]
